FAERS Safety Report 8456847-8 (Version None)
Quarter: 2012Q2

REPORT INFORMATION
  Report Type: 
  Country: None (occurrence: None)
  Receive Date: 20120621
  Receipt Date: 20120612
  Transmission Date: 20120825
  Serious: Yes (Hospitalization, Other)
  Sender: FDA-Public Use
  Company Number: US-MYLANLABS-2009AL000703

PATIENT
  Age: 77 Year
  Sex: Female
  Weight: 58.97 kg

DRUGS (51)
  1. ZOLPIDEM [Concomitant]
  2. ADVAIR DISKUS 100/50 [Concomitant]
  3. UNIPHYL [Concomitant]
  4. LEVAQUIN [Concomitant]
  5. HUMULIN R [Concomitant]
  6. CITALOPRAM HYDROBROMIDE [Concomitant]
  7. THEOPHYLLINE [Concomitant]
  8. MORPHINE [Concomitant]
  9. LEVOTHYROXINE [Concomitant]
  10. METHASONE /00016002/ [Concomitant]
  11. INSULIN [Concomitant]
     Dosage: 70/30 15 UNITS IN MORNING AND 8 UNITS IN NIGHT
  12. NITROSTAT [Concomitant]
  13. OYST-CAL-D /00944201/ [Concomitant]
  14. ALBUTEROL [Concomitant]
  15. PROMETHAZINE - CODEINE /01129901/ [Concomitant]
  16. SINGULAIR [Concomitant]
  17. METHADON HCL TAB [Concomitant]
  18. CLARITHROMYCIN [Concomitant]
  19. GUAIFENESIN [Concomitant]
  20. PRILOSEC [Concomitant]
  21. AUGMENTIN '125' [Concomitant]
  22. DOXYCYLINE HYCLATE [Concomitant]
  23. DIGOXIN [Suspect]
     Indication: HEART RATE IRREGULAR
     Route: 065
     Dates: start: 20031001, end: 20080530
  24. POTASSIUM ACETATE [Concomitant]
  25. ALPRAZOLAM [Concomitant]
  26. PAXIL [Concomitant]
  27. HUMIBID [Concomitant]
  28. COREG [Concomitant]
  29. ISOSORBIDE [Concomitant]
  30. METFORMIN HCL [Concomitant]
  31. FENOFIBRATE [Concomitant]
  32. HYDROXYZINE HYDROCHLORIDE [Concomitant]
  33. LASIX [Concomitant]
  34. ASPIRIN [Concomitant]
  35. THEO-24 [Concomitant]
  36. OYSTER SHELL CALCIUM [Concomitant]
  37. LANTUS [Concomitant]
     Dosage: 100 U/ML
  38. HUMALOG [Concomitant]
  39. HEPARIN [Concomitant]
  40. SEROQUEL [Concomitant]
  41. MUCINEX [Concomitant]
  42. SIMVASTATIN [Concomitant]
  43. PLAVIX [Concomitant]
  44. VYTORIN [Concomitant]
  45. LOVAZA [Concomitant]
  46. CARVEDILOL [Concomitant]
  47. METHYLPREDNISOLONE [Concomitant]
  48. DILAUDID [Concomitant]
  49. NITROGLYCERIN [Concomitant]
  50. FLEXERIL [Concomitant]
  51. ZITHROMAX [Concomitant]

REACTIONS (52)
  - ILL-DEFINED DISORDER [None]
  - BACK PAIN [None]
  - VOMITING [None]
  - CHRONIC OBSTRUCTIVE PULMONARY DISEASE [None]
  - DEPRESSION [None]
  - PRODUCTIVE COUGH [None]
  - OROPHARYNGEAL PAIN [None]
  - TREATMENT NONCOMPLIANCE [None]
  - EMOTIONAL DISTRESS [None]
  - CORONARY ANGIOPLASTY [None]
  - ANXIETY [None]
  - ELECTROCARDIOGRAM ABNORMAL [None]
  - HYPERTRIGLYCERIDAEMIA [None]
  - MUSCULOSKELETAL PAIN [None]
  - BLOOD CHOLESTEROL INCREASED [None]
  - EJECTION FRACTION DECREASED [None]
  - MUSCULOSKELETAL CHEST PAIN [None]
  - CATHETERISATION CARDIAC ABNORMAL [None]
  - ANGINA UNSTABLE [None]
  - BREATH SOUNDS ABNORMAL [None]
  - COUGH [None]
  - MENTAL STATUS CHANGES [None]
  - WHEEZING [None]
  - INJURY [None]
  - HYPERHIDROSIS [None]
  - ACUTE MYOCARDIAL INFARCTION [None]
  - VISION BLURRED [None]
  - DYSPNOEA EXERTIONAL [None]
  - PERIPHERAL VASCULAR DISORDER [None]
  - TOBACCO USER [None]
  - ASTHENIA [None]
  - CORONARY ARTERIAL STENT INSERTION [None]
  - LABORATORY TEST ABNORMAL [None]
  - NAUSEA [None]
  - RHONCHI [None]
  - BLOOD GLUCOSE INCREASED [None]
  - HERPES ZOSTER [None]
  - BRONCHITIS [None]
  - PYREXIA [None]
  - ECONOMIC PROBLEM [None]
  - IN-STENT CORONARY ARTERY RESTENOSIS [None]
  - TYPE 1 DIABETES MELLITUS [None]
  - DIZZINESS [None]
  - INSULIN RESISTANT DIABETES [None]
  - PAIN [None]
  - TOXICITY TO VARIOUS AGENTS [None]
  - CHEST PAIN [None]
  - DYSPNOEA [None]
  - CYANOSIS [None]
  - FATIGUE [None]
  - PULMONARY CONGESTION [None]
  - RHINORRHOEA [None]
